FAERS Safety Report 12873344 (Version 1)
Quarter: 2016Q4

REPORT INFORMATION
  Report Type: Spontaneous
  Country: US (occurrence: US)
  Receive Date: 20161021
  Receipt Date: 20161021
  Transmission Date: 20170207
  Serious: No
  Sender: FDA-Public Use
  Company Number: US-ALLERGAN-1518580US

PATIENT
  Sex: Female

DRUGS (2)
  1. FML [Suspect]
     Active Substance: FLUOROMETHOLONE
     Indication: EYE IRRITATION
     Dosage: UNK, BID
     Route: 061
     Dates: start: 20141231, end: 201501
  2. FML [Suspect]
     Active Substance: FLUOROMETHOLONE
     Indication: EYE PRURITUS

REACTIONS (3)
  - Inappropriate schedule of drug administration [Unknown]
  - Skin hyperpigmentation [Not Recovered/Not Resolved]
  - Keratosis pilaris [Not Recovered/Not Resolved]
